FAERS Safety Report 4825697-3 (Version None)
Quarter: 2005Q4

REPORT INFORMATION
  Report Type: 
  Country: None (occurrence: None)
  Receive Date: 20051109
  Receipt Date: 20051027
  Transmission Date: 20060501
  Serious: Yes (Life-Threatening, Hospitalization, Disabling, Other)
  Sender: FDA-Public Use
  Company Number: 2005151074

PATIENT
  Age: 58 Year
  Sex: Female
  Weight: 77.1115 kg

DRUGS (2)
  1. CELEBREX [Suspect]
     Indication: ARTHRITIS
     Dosage: (200 MG, DAILY), ORAL
     Route: 048
     Dates: start: 20040401, end: 20040608
  2. CELEBREX [Suspect]

REACTIONS (8)
  - COMA [None]
  - DIFFICULTY IN WALKING [None]
  - DYSGRAPHIA [None]
  - HAEMORRHAGE [None]
  - HERNIA [None]
  - PROCEDURAL COMPLICATION [None]
  - PULMONARY THROMBOSIS [None]
  - SPEECH DISORDER [None]
